FAERS Safety Report 23041156 (Version 7)
Quarter: 2024Q2

REPORT INFORMATION
  Report Type: Spontaneous
  Country: FR (occurrence: FR)
  Receive Date: 20231007
  Receipt Date: 20240628
  Transmission Date: 20240715
  Serious: Yes (Death, Life-Threatening, Hospitalization, Other)
  Sender: FDA-Public Use
  Company Number: FR-BAXTER-2023BAX031762

PATIENT
  Age: 79 Year
  Sex: Male
  Weight: 80 kg

DRUGS (28)
  1. DOXORUBICIN [Suspect]
     Active Substance: DOXORUBICIN
     Indication: Diffuse large B-cell lymphoma
     Dosage: 98 MILLIGRAM, EVERY 3 WEEKS
     Route: 042
     Dates: start: 20230817
  2. DOXORUBICIN [Suspect]
     Active Substance: DOXORUBICIN
     Dosage: 97 MILLIGRAM, EVERY 3 WEEKS
     Route: 042
     Dates: start: 20230907, end: 20230907
  3. PREDNISONE [Suspect]
     Active Substance: PREDNISONE
     Indication: Diffuse large B-cell lymphoma
     Dosage: 100 MILLIGRAM
     Route: 048
     Dates: start: 20230817, end: 20230911
  4. CYCLOPHOSPHAMIDE [Suspect]
     Active Substance: CYCLOPHOSPHAMIDE
     Indication: Diffuse large B-cell lymphoma
     Dosage: 1470 MILLIGRAM (EVERY 3 WEEKS)
     Route: 042
     Dates: start: 20230817, end: 20230907
  5. CYCLOPHOSPHAMIDE [Suspect]
     Active Substance: CYCLOPHOSPHAMIDE
     Dosage: 1450 MILLIGRAM (EVERY 3 WEEKS)
     Route: 042
     Dates: start: 20230907, end: 20230907
  6. EPCORITAMAB [Suspect]
     Active Substance: EPCORITAMAB
     Indication: Diffuse large B-cell lymphoma
     Dosage: 0.16 MILLIGRAM (0.16 MG, PRIMING DOSE; C1, D1, TOTAL)
     Route: 058
     Dates: start: 20230817, end: 20230817
  7. EPCORITAMAB [Suspect]
     Active Substance: EPCORITAMAB
     Dosage: 0.8 MILLIGRAM (0.8 MG, INTERMEDIATE DOSE; C1, D8, TOTAL)
     Route: 058
     Dates: start: 20230824, end: 20230824
  8. EPCORITAMAB [Suspect]
     Active Substance: EPCORITAMAB
     Dosage: 48 MILLIGRAM (48 MG, FULL DOSE; C1, D15, TOTAL)
     Route: 058
     Dates: start: 20230831, end: 20230914
  9. RITUXIMAB [Suspect]
     Active Substance: RITUXIMAB
     Indication: Diffuse large B-cell lymphoma
     Dosage: 740 MILLIGRAM (EVEVR 3 WEEKS)
     Route: 042
     Dates: start: 20230817, end: 20230907
  10. VINCRISTINE [Suspect]
     Active Substance: VINCRISTINE
     Indication: Diffuse large B-cell lymphoma
     Dosage: 2 MILLIGRAM  (EVERY 3 WEEKS)
     Route: 042
     Dates: start: 20230817
  11. ALLOPURINOL [Concomitant]
     Active Substance: ALLOPURINOL
     Indication: Hyperuricaemia
     Dosage: 100 MILLIGRAM, ONCE A DAY ?(100 MG, EVERY 1 DAYS)
     Route: 065
  12. BACTRIM [Concomitant]
     Active Substance: SULFAMETHOXAZOLE\TRIMETHOPRIM
     Indication: Antifungal prophylaxis
     Dosage: UNK
     Route: 065
     Dates: start: 20230817
  13. FILGRASTIM [Concomitant]
     Active Substance: FILGRASTIM
     Indication: Prophylaxis
     Dosage: 48 U, EVERY 1 WEEKS
     Route: 065
     Dates: start: 20230817
  14. FILGRASTIM [Concomitant]
     Active Substance: FILGRASTIM
     Indication: Antibiotic prophylaxis
  15. FUNGIZONE [Concomitant]
     Active Substance: AMPHOTERICIN B
     Indication: Prophylaxis
     Dosage: 3/DAYS (START DATE: 2023)
     Route: 065
  16. FUNGIZONE [Concomitant]
     Active Substance: AMPHOTERICIN B
     Indication: Infection prophylaxis
  17. POLYETHYLENE GLYCOLS [Concomitant]
     Active Substance: POLYETHYLENE GLYCOLS
     Indication: Constipation
     Dosage: UNK OCCASIONAL
     Route: 065
     Dates: start: 20230905
  18. ACETAMINOPHEN [Concomitant]
     Active Substance: ACETAMINOPHEN
     Indication: Pain
     Dosage: 650 MILLIGRAM, TWO TIMES A DAY (650 MG, 2/DAYS)
     Route: 065
  19. ACETAMINOPHEN [Concomitant]
     Active Substance: ACETAMINOPHEN
     Indication: Pain prophylaxis
  20. PRIMPERAN [Concomitant]
     Active Substance: METOCLOPRAMIDE HYDROCHLORIDE
     Indication: Prophylaxis
     Dosage: 10 MILLIGRAM, AS NECESSARY
     Route: 065
     Dates: start: 20230817
  21. PRIMPERAN [Concomitant]
     Active Substance: METOCLOPRAMIDE HYDROCHLORIDE
     Indication: Prophylaxis of nausea and vomiting
  22. SIMVASTATIN [Concomitant]
     Active Substance: SIMVASTATIN
     Indication: Dyslipidaemia
     Dosage: 20 MILLIGRAM, ONCE A DAY (20 MG, EVERY 1 DAYS)
     Route: 065
  23. TRAMADOL [Concomitant]
     Active Substance: TRAMADOL\TRAMADOL HYDROCHLORIDE
     Indication: Pain
     Dosage: 75 MILLIGRAM, TWO TIMES A DAY
     Route: 065
  24. TRAMADOL [Concomitant]
     Active Substance: TRAMADOL\TRAMADOL HYDROCHLORIDE
     Indication: Cancer pain
  25. .ALPHA.-TOCOPHEROL ACETATE, D- [Concomitant]
     Active Substance: .ALPHA.-TOCOPHEROL ACETATE, D-
     Indication: Vitamin E deficiency
     Dosage: 1000 MILLIGRAM, ONCE A DAY (1000 MG, EVERY 1 DAYS)
     Route: 065
  26. .ALPHA.-TOCOPHEROL ACETATE, D- [Concomitant]
     Active Substance: .ALPHA.-TOCOPHEROL ACETATE, D-
     Indication: Vitamin supplementation
  27. VALACYCLOVIR HYDROCHLORIDE [Concomitant]
     Active Substance: VALACYCLOVIR HYDROCHLORIDE
     Indication: Prophylaxis
     Dosage: 500 MILLIGRAM (500 MG, 2/DAYS)
     Route: 065
     Dates: start: 20230817
  28. VALACYCLOVIR HYDROCHLORIDE [Concomitant]
     Active Substance: VALACYCLOVIR HYDROCHLORIDE
     Indication: Antiviral prophylaxis

REACTIONS (3)
  - Septic shock [Fatal]
  - Thrombocytopenia [Not Recovered/Not Resolved]
  - Shock haemorrhagic [Fatal]

NARRATIVE: CASE EVENT DATE: 20230916
